FAERS Safety Report 4972162-9 (Version None)
Quarter: 2006Q2

REPORT INFORMATION
  Report Type: 
  Country: None (occurrence: None)
  Receive Date: 20060413
  Receipt Date: 20060308
  Transmission Date: 20061013
  Serious: Yes (Hospitalization)
  Sender: FDA-Public Use
  Company Number: US-ROCHE-439779

PATIENT
  Age: 55 Year
  Sex: Female
  Weight: 55.3 kg

DRUGS (2)
  1. BONIVA [Suspect]
     Indication: OSTEOPENIA
     Route: 048
     Dates: start: 20051215, end: 20060215
  2. BONIVA [Suspect]
     Route: 048
     Dates: start: 20060301, end: 20060301

REACTIONS (7)
  - ARTHRALGIA [None]
  - BONE PAIN [None]
  - BURNING SENSATION [None]
  - DYSPEPSIA [None]
  - MYALGIA [None]
  - PAIN [None]
  - PYREXIA [None]
